FAERS Safety Report 6258300-9 (Version None)
Quarter: 2009Q3

REPORT INFORMATION
  Report Type: 
  Country: None (occurrence: None)
  Receive Date: 20090702
  Receipt Date: 20090618
  Transmission Date: 20100115
  Serious: Yes (Hospitalization, Disabling)
  Sender: FDA-Public Use
  Company Number: 8044625

PATIENT
  Age: 22 Year
  Sex: Female

DRUGS (2)
  1. KEPPRA [Suspect]
     Indication: EPILEPSY
     Dates: start: 20070101
  2. KEPPRA [Suspect]
     Indication: EPILEPSY
     Dosage: 1500 MG D PO
     Route: 048
     Dates: start: 20080301, end: 20090328

REACTIONS (3)
  - DELIRIUM [None]
  - HALLUCINATION [None]
  - SCHIZOPHRENIA [None]
